FAERS Safety Report 4787140-2 (Version None)
Quarter: 2005Q4

REPORT INFORMATION
  Report Type: 
  Country: None (occurrence: None)
  Receive Date: 20051004
  Receipt Date: 20050923
  Transmission Date: 20060501
  Serious: Yes (Hospitalization, Disabling)
  Sender: FDA-Public Use
  Company Number: US-MERCK-0509USA03863

PATIENT
  Age: 60 Year
  Sex: Male
  Weight: 120 kg

DRUGS (11)
  1. VIOXX [Suspect]
     Indication: ARTHRITIS
     Route: 048
     Dates: start: 20000401, end: 20040601
  2. VIOXX [Suspect]
     Route: 048
     Dates: start: 20000401, end: 20040601
  3. TENORMIN [Concomitant]
     Indication: HYPERTENSION
     Route: 048
     Dates: end: 19991201
  4. TENORMIN [Concomitant]
     Route: 048
  5. MAXZIDE [Concomitant]
     Indication: HYPERTENSION
     Route: 065
  6. ALLEGRA [Concomitant]
     Indication: HYPERSENSITIVITY
     Route: 048
  7. MONOPRIL [Concomitant]
     Route: 065
  8. PRINZIDE [Concomitant]
     Indication: HYPERTENSION
     Route: 048
     Dates: start: 20000101
  9. SEREVENT [Concomitant]
     Route: 065
  10. VENTOLIN [Concomitant]
     Route: 065
  11. ZANTAC [Concomitant]
     Indication: GASTROOESOPHAGEAL REFLUX DISEASE
     Route: 065

REACTIONS (15)
  - ACUTE MYOCARDIAL INFARCTION [None]
  - ALLERGIC SINUSITIS [None]
  - BLOOD PRESSURE DECREASED [None]
  - BRONCHITIS ACUTE [None]
  - CHRONIC OBSTRUCTIVE PULMONARY DISEASE [None]
  - DIZZINESS [None]
  - ERECTILE DYSFUNCTION [None]
  - HYPERLIPIDAEMIA [None]
  - HYPERTENSION [None]
  - JOINT CREPITATION [None]
  - MUSCLE SPASMS [None]
  - OBESITY [None]
  - OEDEMA PERIPHERAL [None]
  - PNEUMOCONIOSIS [None]
  - RENAL COLIC [None]
